FAERS Safety Report 8767247 (Version 1)
Quarter: 2012Q4

REPORT INFORMATION
  Report Type: 
  Country: US (occurrence: US)
  Receive Date: 20120904
  Receipt Date: 20120904
  Transmission Date: 20130627
  Serious: Yes (Other)
  Sender: FDA-Public Use
  Company Number: US-JNJFOC-20110802535

PATIENT
  Age: 69 None
  Sex: Female

DRUGS (2)
  1. LEVAQUIN [Suspect]
     Indication: PHARYNGITIS
     Route: 048
  2. PREDNISONE [Suspect]
     Indication: PRODUCT USED FOR UNKNOWN INDICATION
     Route: 065

REACTIONS (2)
  - Tenosynovitis [Recovering/Resolving]
  - Plantar fasciitis [Unknown]
